FAERS Safety Report 6968414-3 (Version None)
Quarter: 2010Q3

REPORT INFORMATION
  Report Type: 
  Country: None (occurrence: None)
  Receive Date: 20100907
  Receipt Date: 20100824
  Transmission Date: 20110219
  Serious: Yes (Other)
  Sender: FDA-Public Use
  Company Number: PHHY2010CA55980

PATIENT

DRUGS (1)
  1. RASILEZ [Suspect]

REACTIONS (1)
  - RENAL FAILURE [None]
